FAERS Safety Report 9795097 (Version 1)
Quarter: 2014Q1

REPORT INFORMATION
  Report Type: Report from Study
  Country: US (occurrence: US)
  Receive Date: 20140103
  Receipt Date: 20140103
  Transmission Date: 20141002
  Serious: Yes (Hospitalization)
  Sender: FDA-Public Use
  Company Number: US-ROCHE-1326272

PATIENT
  Sex: Male
  Weight: 61.7 kg

DRUGS (19)
  1. XOLAIR [Suspect]
     Indication: PRODUCT USED FOR UNKNOWN INDICATION
     Route: 065
  2. KLONOPIN [Suspect]
     Indication: PRODUCT USED FOR UNKNOWN INDICATION
     Dosage: 0.5/0.5/0.75 MG
     Route: 065
  3. ABILIFY [Concomitant]
     Route: 048
  4. ALLEGRA [Concomitant]
     Route: 048
  5. CLONIDINE [Concomitant]
     Route: 048
  6. CYCLOSPORINE [Concomitant]
     Route: 048
  7. DUONEB [Concomitant]
     Indication: COUGH
     Route: 065
  8. DUONEB [Concomitant]
     Route: 065
  9. EPIPEN [Concomitant]
     Route: 030
  10. FLOVENT HFA [Concomitant]
     Dosage: 2 PUFF INHALE
     Route: 065
  11. NORDITROPIN [Concomitant]
     Dosage: 15 MG/1.5 ML PEN INJECTOR
     Route: 058
  12. ONDANSETRON HCL [Concomitant]
     Route: 048
  13. OXYCODONE [Concomitant]
     Dosage: AS REQUIRED
     Route: 048
  14. PERCOCET [Concomitant]
     Dosage: 5 MG/325 MG
     Route: 048
  15. PREDNISONE [Concomitant]
     Route: 065
  16. PREDNISONE [Concomitant]
     Dosage: FOR 5 DAYS
     Route: 054
  17. PRILOSEC [Concomitant]
  18. TESTOSTERONE CYPIONATE [Concomitant]
     Route: 030
  19. ZOLOFT [Concomitant]
     Route: 048

REACTIONS (2)
  - Anaphylactic reaction [Unknown]
  - Hypersensitivity [Unknown]
